FAERS Safety Report 13415127 (Version 2)
Quarter: 2017Q2

REPORT INFORMATION
  Report Type: Report from Study
  Country: RO (occurrence: RO)
  Receive Date: 20170406
  Receipt Date: 20170428
  Transmission Date: 20170830
  Serious: Yes (Death, Life-Threatening)
  Sender: FDA-Public Use
  Company Number: RO-TOLMAR, INC.-2017RO004152

PATIENT
  Age: 74 Year
  Sex: Male
  Weight: 84 kg

DRUGS (3)
  1. ELIGARD [Suspect]
     Active Substance: LEUPROLIDE ACETATE
     Indication: PROSTATE CANCER
     Dosage: 45 MG, EVERY 6 MONTHS
     Route: 058
     Dates: start: 20130913, end: 20140307
  2. ELIGARD [Suspect]
     Active Substance: LEUPROLIDE ACETATE
     Dosage: 45 MG, EVERY 6 MONTHS
     Route: 058
     Dates: start: 20140307
  3. CALUMID [Concomitant]
     Dosage: UNK
     Dates: start: 2008, end: 20130901

REACTIONS (2)
  - Death [Fatal]
  - Neoplasm progression [Fatal]

NARRATIVE: CASE EVENT DATE: 20140307
